FAERS Safety Report 22297524 (Version 1)
Quarter: 2023Q2

REPORT INFORMATION
  Report Type: Spontaneous
  Country: AT (occurrence: AT)
  Receive Date: 20230509
  Receipt Date: 20230509
  Transmission Date: 20230722
  Serious: Yes (Death, Other)
  Sender: FDA-Public Use
  Company Number: AT-AMGEN-AUTSP2023076001

PATIENT
  Age: 80 Year
  Sex: Male

DRUGS (2)
  1. XGEVA [Suspect]
     Active Substance: DENOSUMAB
     Indication: Metastases to bone
     Dosage: UNK
     Route: 065
  2. AVELUMAB [Concomitant]
     Active Substance: AVELUMAB
     Dosage: 800 MILLIGRAM, Q2WK
     Route: 042

REACTIONS (4)
  - Death [Fatal]
  - Metastases to liver [Unknown]
  - Tumour hyperprogression [Unknown]
  - General physical health deterioration [Unknown]
